FAERS Safety Report 8100387-2 (Version None)
Quarter: 2012Q1

REPORT INFORMATION
  Report Type: 
  Country: None (occurrence: None)
  Receive Date: 20120129
  Receipt Date: 20111115
  Transmission Date: 20120608
  Serious: No
  Sender: FDA-Public Use
  Company Number: US-ABBOTT-11P-163-0874871-00

PATIENT
  Sex: Male

DRUGS (1)
  1. HUMIRA [Suspect]
     Indication: COLITIS ULCERATIVE
     Dates: start: 20110920, end: 20111114

REACTIONS (6)
  - STOMATITIS [None]
  - JOINT SWELLING [None]
  - ARTHRALGIA [None]
  - MYALGIA [None]
  - COLITIS ULCERATIVE [None]
  - ACNE [None]
